FAERS Safety Report 23757103 (Version 1)
Quarter: 2024Q2

REPORT INFORMATION
  Report Type: Spontaneous
  Country: US (occurrence: US)
  Receive Date: 20240418
  Receipt Date: 20240418
  Transmission Date: 20240715
  Serious: No
  Sender: FDA-Public Use
  Company Number: US-PFIZER INC-202400088152

PATIENT
  Age: 74 Year
  Sex: Female

DRUGS (2)
  1. ONDANSETRON [Suspect]
     Active Substance: ONDANSETRON
     Indication: Dizziness
  2. ONDANSETRON [Suspect]
     Active Substance: ONDANSETRON
     Indication: Headache

REACTIONS (2)
  - Abdominal discomfort [Unknown]
  - Off label use [Unknown]
